FAERS Safety Report 8722024 (Version 8)
Quarter: 2013Q1

REPORT INFORMATION
  Report Type: Report from Study
  Country: AT (occurrence: AT)
  Receive Date: 20120814
  Receipt Date: 20130325
  Transmission Date: 20140127
  Serious: Yes (Hospitalization)
  Sender: FDA-Public Use
  Company Number: AT-BRISTOL-MYERS SQUIBB COMPANY-16850604

PATIENT
  Age: 78 Year
  Sex: Female

DRUGS (8)
  1. IPILIMUMAB [Suspect]
     Indication: METASTATIC MALIGNANT MELANOMA
     Dosage: ONGOING
     Route: 042
     Dates: start: 20120614, end: 20120816
  2. AMLODIPINE [Concomitant]
     Dates: start: 201111
  3. EUTHYROX [Concomitant]
     Dates: start: 200711
  4. HYPREN PLUS [Concomitant]
     Dates: start: 20120607
  5. URBASON [Concomitant]
     Route: 048
     Dates: start: 20120813
  6. OMEPRAZOLE [Concomitant]
     Dosage: GASTROZOL
     Route: 048
     Dates: start: 20120818
  7. MIDAZOLAM [Concomitant]
  8. PROPOFOL [Concomitant]

REACTIONS (3)
  - Cytomegalovirus colitis [Recovered/Resolved]
  - Colitis [Recovered/Resolved]
  - Constipation [Recovered/Resolved]
